FAERS Safety Report 9450716 (Version 1)
Quarter: 2013Q3

REPORT INFORMATION
  Report Type: Spontaneous
  Country: US (occurrence: US)
  Receive Date: 20130809
  Receipt Date: 20130809
  Transmission Date: 20140515
  Serious: Yes (Other)
  Sender: FDA-Public Use
  Company Number: US-BAYER-2013-096128

PATIENT
  Age: 40 Year
  Sex: Female

DRUGS (4)
  1. ACETYLSALICYLIC ACID (} 100 MG) [Suspect]
     Indication: DRUG HYPERSENSITIVITY
     Dosage: 40.5 MG, ONCE
  2. ACETYLSALICYLIC ACID (} 100 MG) [Suspect]
     Indication: DRUG HYPERSENSITIVITY
     Dosage: INCREASE EVERY 3 HOUR UP TO 650 MG
  3. ACETYLSALICYLIC ACID (} 100 MG) [Suspect]
     Indication: DRUG HYPERSENSITIVITY
     Dosage: 650 MG, ONCE
  4. ACETYLSALICYLIC ACID (} 100 MG) [Suspect]
     Indication: DRUG HYPERSENSITIVITY
     Dosage: 650 MG, ONCE

REACTIONS (5)
  - Analgesic asthma syndrome [Recovered/Resolved]
  - Wheezing [Recovered/Resolved]
  - Flushing [Recovered/Resolved]
  - Nasal congestion [Recovered/Resolved]
  - Ear discomfort [Recovered/Resolved]
